FAERS Safety Report 24635619 (Version 1)
Quarter: 2024Q4

REPORT INFORMATION
  Report Type: Spontaneous
  Country: US (occurrence: US)
  Receive Date: 20241119
  Receipt Date: 20241119
  Transmission Date: 20250115
  Serious: No
  Sender: CATALYST PHARMA
  Company Number: US-CATALYST PHARMACEUTICALS-US-CATA-24-00857

PATIENT
  Sex: Male
  Weight: 49.2 kg

DRUGS (9)
  1. AGAMREE [Suspect]
     Active Substance: VAMOROLONE
     Indication: Duchenne muscular dystrophy
     Dosage: 7.4 ML (296 MG), DAILY
     Route: 048
     Dates: start: 20240316, end: 2024
  2. AGAMREE [Suspect]
     Active Substance: VAMOROLONE
     Dosage: 7.4 ML (296 MG), MONDAY TO FRIDAY
     Route: 048
     Dates: start: 20240501, end: 2024
  3. AGAMREE [Suspect]
     Active Substance: VAMOROLONE
     Dosage: 7.4 ML (296 MG), MONDAY TO SATURDAY
     Route: 048
     Dates: start: 2024
  4. ADVIL [Concomitant]
     Active Substance: IBUPROFEN
     Indication: Product used for unknown indication
     Dosage: 200 MG AS NEEDED
     Route: 065
  5. COENZYME Q10 [Concomitant]
     Active Substance: DIETARY SUPPLEMENT\UBIDECARENONE
     Indication: Product used for unknown indication
     Dosage: 100 MG TWICE A DAY
     Route: 065
  6. CULTURELLE PROBIOTIC FOR KIDS [Concomitant]
     Indication: Product used for unknown indication
     Dosage: 1 TABLET WEEKLY
     Route: 065
  7. MAGNESIUM [Concomitant]
     Active Substance: MAGNESIUM
     Indication: Product used for unknown indication
     Dosage: 200 MG DAILY
     Route: 065
  8. TYLENOL [Concomitant]
     Active Substance: ACETAMINOPHEN
     Indication: Product used for unknown indication
     Dosage: 325 MG AS NEEDED
     Route: 065
  9. VITAMIN D3 [Concomitant]
     Active Substance: CHOLECALCIFEROL
     Indication: Product used for unknown indication
     Dosage: 2500 UNITS TWICE A WEEK
     Route: 065

REACTIONS (1)
  - Back pain [Not Recovered/Not Resolved]

NARRATIVE: CASE EVENT DATE: 20240101
